FAERS Safety Report 7250476-X (Version None)
Quarter: 2011Q1

REPORT INFORMATION
  Report Type: 
  Country: None (occurrence: None)
  Receive Date: 20110118
  Receipt Date: 20110110
  Transmission Date: 20110831
  Serious: Yes (Hospitalization)
  Sender: FDA-Public Use
  Company Number: 2011SP000968

PATIENT
  Age: 55 Year
  Sex: Male

DRUGS (3)
  1. HEPARIN [Suspect]
     Indication: ATRIAL FIBRILLATION
  2. ARGATROBAN [Suspect]
     Indication: THROMBOCYTOPENIA
  3. ORGARAN [Suspect]
     Indication: HEPARIN-INDUCED THROMBOCYTOPENIA
     Dosage: IV
     Route: 042
     Dates: start: 20101102, end: 20101105

REACTIONS (7)
  - HEPARIN-INDUCED THROMBOCYTOPENIA [None]
  - BRADYCARDIA [None]
  - NECROSIS [None]
  - HAEMODYNAMIC INSTABILITY [None]
  - THROMBOSIS [None]
  - PERIPHERAL ISCHAEMIA [None]
  - SYSTEMIC INFLAMMATORY RESPONSE SYNDROME [None]
